FAERS Safety Report 10219487 (Version 1)
Quarter: 2014Q2

REPORT INFORMATION
  Report Type: Spontaneous
  Country: US (occurrence: None)
  Receive Date: 20140604
  Receipt Date: 20140604
  Transmission Date: 20141212
  Serious: Yes (Hospitalization)
  Sender: FDA-Public Use
  Company Number: None

PATIENT
  Age: 50 Year
  Sex: Male
  Weight: 79.07 kg

DRUGS (9)
  1. PLERIXAFOR AMD3100 [Suspect]
     Indication: GLIOBLASTOMA
     Dosage: 320 UG/KG QD 21 OR 28 DAYS
     Dates: start: 20140127, end: 20140216
  2. BEVACIZUMAB [Suspect]
     Indication: GLIOBLASTOMA
     Dates: start: 20140127, end: 20140210
  3. AMBIEN [Concomitant]
  4. CLARITIN [Concomitant]
  5. HYDROCHLOROTHIAZIDE [Concomitant]
  6. MELATONIN [Concomitant]
  7. NYSTATIN [Concomitant]
  8. SIMVASTATIN [Concomitant]
  9. LEVETIRACETAM [Concomitant]

REACTIONS (3)
  - Aphasia [None]
  - Fluid retention [None]
  - Cerebral disorder [None]
